FAERS Safety Report 13093271 (Version 1)
Quarter: 2017Q1

REPORT INFORMATION
  Report Type: Spontaneous
  Country: US (occurrence: US)
  Receive Date: 20170106
  Receipt Date: 20170106
  Transmission Date: 20170428
  Serious: Yes (Death, Hospitalization)
  Sender: FDA-Public Use
  Company Number: US-BAYER-2017-001435

PATIENT
  Age: 16 Year
  Sex: Female

DRUGS (5)
  1. CHLORPHENIRAMINE MALEATE. [Suspect]
     Active Substance: CHLORPHENIRAMINE MALEATE
     Route: 048
  2. RISPERIDONE. [Suspect]
     Active Substance: RISPERIDONE
  3. ARIPIPRAZOLE. [Suspect]
     Active Substance: ARIPIPRAZOLE
  4. DOXEPIN [Suspect]
     Active Substance: DOXEPIN
  5. ALCOHOL. [Suspect]
     Active Substance: ALCOHOL

REACTIONS (1)
  - Toxicity to various agents [Fatal]
